FAERS Safety Report 10636950 (Version 2)
Quarter: 2014Q4

REPORT INFORMATION
  Report Type: Spontaneous
  Country: US (occurrence: US)
  Receive Date: 20141208
  Receipt Date: 20141229
  Transmission Date: 20150529
  Serious: No
  Sender: FDA-Public Use
  Company Number: US-BIOGENIDEC-2014BI128641

PATIENT
  Age: 49 Year
  Sex: Female

DRUGS (2)
  1. TECFIDERA [Suspect]
     Active Substance: DIMETHYL FUMARATE
     Indication: MULTIPLE SCLEROSIS
     Dates: start: 20140810
  2. TECFIDERA [Suspect]
     Active Substance: DIMETHYL FUMARATE
     Indication: MULTIPLE SCLEROSIS
     Route: 048
     Dates: start: 20140729, end: 20141205

REACTIONS (4)
  - Muscle spasms [Recovered/Resolved]
  - Monoplegia [Not Recovered/Not Resolved]
  - Alopecia [Not Recovered/Not Resolved]
  - Hepatic enzyme increased [Unknown]

NARRATIVE: CASE EVENT DATE: 2014
